FAERS Safety Report 4351594-6 (Version None)
Quarter: 2004Q2

REPORT INFORMATION
  Report Type: 
  Country: None (occurrence: None)
  Receive Date: 20040503
  Receipt Date: 20040423
  Transmission Date: 20050107
  Serious: Yes (Hospitalization)
  Sender: FDA-Public Use
  Company Number: US-AMGEN-US073866

PATIENT
  Sex: Male

DRUGS (3)
  1. ETANERCEPT [Suspect]
     Indication: PULMONARY FIBROSIS
     Route: 058
     Dates: start: 20040219, end: 20040412
  2. ULTRACET [Concomitant]
     Dates: start: 20000501
  3. AMARYL [Concomitant]
     Dates: start: 19990101

REACTIONS (4)
  - HEPATIC FAILURE [None]
  - PLEURAL EFFUSION [None]
  - RENAL FAILURE [None]
  - SYNCOPE [None]
